FAERS Safety Report 7637268-4 (Version None)
Quarter: 2011Q3

REPORT INFORMATION
  Report Type: 
  Country: None (occurrence: None)
  Receive Date: 20110726
  Receipt Date: 20110722
  Transmission Date: 20111222
  Serious: Yes (Hospitalization, Disabling, Other)
  Sender: FDA-Public Use
  Company Number: US-PFIZER INC-2010079891

PATIENT
  Sex: Female
  Weight: 80.726 kg

DRUGS (10)
  1. GLYBURIDE [Concomitant]
     Indication: DIABETES MELLITUS
     Dosage: 6 MG, 2X/DAY
     Route: 048
  2. WARFARIN [Concomitant]
     Indication: ANTICOAGULANT THERAPY
     Dosage: 2.5 MG, 1X/DAY
     Route: 048
  3. LYRICA [Suspect]
     Dosage: 100 MG DAILY
     Route: 048
     Dates: start: 20101201
  4. LISINOPRIL [Concomitant]
     Indication: HYPERTENSION
     Dosage: UNK
  5. METOPROLOL [Concomitant]
     Indication: HYPERTENSION
     Dosage: UNK
  6. CRESTOR [Concomitant]
     Dosage: UNK
  7. LYRICA [Suspect]
     Indication: NEUROPATHY PERIPHERAL
     Dosage: 100 MG, 3X/DAY
     Route: 048
     Dates: start: 20050101, end: 20100101
  8. NITROGLYCERIN [Concomitant]
     Dosage: UNK
  9. INSULIN [Concomitant]
     Indication: DIABETES MELLITUS
     Dosage: UNK
  10. LYRICA [Suspect]
     Dosage: 100 MG, 2X/DAY
     Route: 048
     Dates: start: 20110101, end: 20110101

REACTIONS (8)
  - GAIT DISTURBANCE [None]
  - PAIN [None]
  - WEIGHT INCREASED [None]
  - INSOMNIA [None]
  - PAIN IN EXTREMITY [None]
  - HYPERTENSION [None]
  - MYOCARDIAL INFARCTION [None]
  - OEDEMA PERIPHERAL [None]
